FAERS Safety Report 4432488-4 (Version None)
Quarter: 2004Q3

REPORT INFORMATION
  Report Type: 
  Country: None (occurrence: None)
  Receive Date: 20040820
  Receipt Date: 20040810
  Transmission Date: 20050211
  Serious: Yes (Congenital Anomaly)
  Sender: FDA-Public Use
  Company Number: APP200400686 (0)

PATIENT
  Sex: Female

DRUGS (3)
  1. PROFASI HP [Suspect]
     Indication: INFERTILITY
  2. GONAL-F [Concomitant]
  3. LUPRON [Concomitant]

REACTIONS (2)
  - ANAL ATRESIA [None]
  - DRUG EXPOSURE DURING PREGNANCY [None]
